FAERS Safety Report 9336137 (Version 2)
Quarter: 2013Q2

REPORT INFORMATION
  Report Type: Spontaneous
  Country: CN (occurrence: CN)
  Receive Date: 20130607
  Receipt Date: 20130614
  Transmission Date: 20140414
  Serious: Yes (Other)
  Sender: FDA-Public Use
  Company Number: CN-009507513-1306CHN002260

PATIENT
  Age: 30 Year
  Sex: Male
  Weight: 90 kg

DRUGS (1)
  1. ZOCOR [Suspect]
     Indication: HYPERLIPIDAEMIA
     Dosage: 20 MG, QD
     Route: 048
     Dates: start: 20120101, end: 20120306

REACTIONS (1)
  - Henoch-Schonlein purpura [Recovered/Resolved]
